FAERS Safety Report 11021567 (Version 1)
Quarter: 2015Q2

REPORT INFORMATION
  Report Type: Spontaneous
  Country: FR (occurrence: FR)
  Receive Date: 20150413
  Receipt Date: 20150413
  Transmission Date: 20150821
  Serious: Yes (Other)
  Sender: FDA-Public Use
  Company Number: FR-TEVA-554399ISR

PATIENT
  Age: 61 Year
  Sex: Male

DRUGS (4)
  1. LEVOFOLINATE CALCIQUE [Suspect]
     Active Substance: LEVOLEUCOVORIN CALCIUM
     Indication: VITAMIN B COMPLEX DEFICIENCY
     Dosage: 380 MILLIGRAM DAILY;
     Route: 042
     Dates: start: 20150219, end: 20150219
  2. METHYLPREDNISOLONE. [Suspect]
     Active Substance: METHYLPREDNISOLONE
     Indication: NEOPLASM MALIGNANT
     Dosage: 75 MILLIGRAM DAILY;
     Route: 042
     Dates: start: 20150219, end: 20150219
  3. ONDANSETRON AGUETTANT [Suspect]
     Active Substance: ONDANSETRON
     Dosage: 8 MILLIGRAM DAILY;
     Route: 042
     Dates: start: 20150219, end: 20150219
  4. OXALIPLATINE TEVA [Suspect]
     Active Substance: OXALIPLATIN
     Indication: ADENOCARCINOMA OF COLON
     Dosage: 160 MILLIGRAM DAILY;
     Route: 042
     Dates: start: 20150219, end: 20150219

REACTIONS (4)
  - Vomiting [Recovered/Resolved]
  - Erythema [Recovered/Resolved]
  - Malaise [Recovered/Resolved]
  - Tachycardia [Recovered/Resolved]

NARRATIVE: CASE EVENT DATE: 20150219
